FAERS Safety Report 7876160-7 (Version None)
Quarter: 2011Q4

REPORT INFORMATION
  Report Type: 
  Country: None (occurrence: None)
  Receive Date: 20111031
  Receipt Date: 20111024
  Transmission Date: 20120403
  Serious: Yes (Death, Other)
  Sender: FDA-Public Use
  Company Number: PE-ELI_LILLY_AND_COMPANY-PE201107004139

PATIENT
  Age: 65 Year
  Sex: Male

DRUGS (3)
  1. CISPLATIN [Concomitant]
  2. AVASTIN [Concomitant]
  3. ALIMTA [Suspect]
     Indication: LUNG ADENOCARCINOMA METASTATIC
     Dosage: 500 MG/M2, UNK
     Route: 042

REACTIONS (3)
  - MYOCARDIAL INFARCTION [None]
  - RASH ERYTHEMATOUS [None]
  - RASH PAPULAR [None]
